FAERS Safety Report 19898575 (Version 1)
Quarter: 2021Q3

REPORT INFORMATION
  Report Type: Spontaneous
  Country: DE (occurrence: DE)
  Receive Date: 20210929
  Receipt Date: 20210929
  Transmission Date: 20211014
  Serious: Yes (Hospitalization)
  Sender: FDA-Public Use
  Company Number: DE-MYLANLABS-2021M1066595

PATIENT
  Age: 80 Year
  Sex: Female

DRUGS (5)
  1. ATORVASTATIN [Concomitant]
     Active Substance: ATORVASTATIN
     Dosage: 20 MILLIGRAM, 0?0?0?2
     Route: 048
  2. METFORMIN [Concomitant]
     Active Substance: METFORMIN HYDROCHLORIDE
     Dosage: 500 MILLIGRAM, 0.5?0?1?0
     Route: 048
  3. HYDROCHLOROTHIAZIDE/TELMISARTAN [Suspect]
     Active Substance: HYDROCHLOROTHIAZIDE\TELMISARTAN
     Indication: PRODUCT USED FOR UNKNOWN INDICATION
     Dosage: 25|80 MG, IN NFA PAUSIERT, TABLETTEN
     Route: 048
  4. FERRO?SANOL DUODENAL [Concomitant]
     Active Substance: FERROUS GLYCINE SULFATE
     Dosage: UNK, QD, 1?0?0?0, KAPSELN
     Route: 048
  5. LANSOPRAZOL [Concomitant]
     Active Substance: LANSOPRAZOLE
     Dosage: 30 MILLIGRAM, Q2D, 1?0?1?0
     Route: 048

REACTIONS (2)
  - Angina pectoris [Unknown]
  - Throat tightness [Unknown]
